FAERS Safety Report 8837251 (Version 1)
Quarter: 2012Q4

REPORT INFORMATION
  Report Type: Spontaneous
  Country: US (occurrence: None)
  Receive Date: 20121011
  Receipt Date: 20121011
  Transmission Date: 20130627
  Serious: No
  Sender: FDA-Public Use
  Company Number: None

PATIENT
  Age: 69 Year
  Sex: Female
  Weight: 65.77 kg

DRUGS (1)
  1. CIPROFLOXACIN [Suspect]
     Indication: UTI
     Dosage: 500 2 times daily
     Dates: start: 20120907, end: 20120913

REACTIONS (6)
  - Tremor [None]
  - Burning sensation [None]
  - Nervousness [None]
  - Dizziness [None]
  - Myalgia [None]
  - Vision blurred [None]
